FAERS Safety Report 8573473-0 (Version None)
Quarter: 2012Q3

REPORT INFORMATION
  Report Type: 
  Country: None (occurrence: None)
  Receive Date: 20120806
  Receipt Date: 20120801
  Transmission Date: 20120928
  Serious: Yes (Life-Threatening, Hospitalization, Other)
  Sender: FDA-Public Use
  Company Number: DE-ELI_LILLY_AND_COMPANY-DE201204008151

PATIENT
  Age: 55 Year
  Sex: Female

DRUGS (12)
  1. PREDNISONE TAB [Concomitant]
  2. DEXAMETHASONE SODIUM PHOSPHATE [Concomitant]
     Dosage: UNK
     Dates: start: 20120229
  3. RANITIDINE [Concomitant]
  4. ALLOPURINOL [Concomitant]
     Dosage: UNK
     Dates: start: 20120201
  5. OPIOIDS [Concomitant]
  6. CISPLATIN [Concomitant]
     Indication: BRONCHIAL CARCINOMA
     Dosage: 75 MG/M2, UNK
     Dates: start: 20120229
  7. NOVALGIN [Concomitant]
  8. APREPITANT [Concomitant]
  9. FOLIC ACID [Concomitant]
  10. ONDANSETRON [Concomitant]
  11. ALIMTA [Suspect]
     Indication: BRONCHIAL CARCINOMA
     Dosage: 500 MG/M2, UNK
     Route: 042
     Dates: start: 20120229
  12. VITAMIN B-12 [Concomitant]

REACTIONS (11)
  - ASPARTATE AMINOTRANSFERASE INCREASED [None]
  - ALANINE AMINOTRANSFERASE INCREASED [None]
  - GRANULOCYTOPENIA [None]
  - FEBRILE NEUTROPENIA [None]
  - STOMATITIS [None]
  - THROMBOCYTOPENIA [None]
  - AUTOIMMUNE THROMBOCYTOPENIA [None]
  - MOUTH HAEMORRHAGE [None]
  - PARANEOPLASTIC SYNDROME [None]
  - ANAEMIA [None]
  - DIARRHOEA [None]
